FAERS Safety Report 9207975 (Version 3)
Quarter: 2014Q1

REPORT INFORMATION
  Report Type: Report from Study
  Country: US (occurrence: US)
  Receive Date: 20130403
  Receipt Date: 20140205
  Transmission Date: 20141002
  Serious: Yes (Hospitalization)
  Sender: FDA-Public Use
  Company Number: US-ALEXION-A201300583

PATIENT
  Sex: 0

DRUGS (6)
  1. SOLIRIS [Suspect]
     Indication: PAROXYSMAL NOCTURNAL HAEMOGLOBINURIA
     Dosage: 900 MG, Q12 DAYS
  2. EXJADE [Concomitant]
  3. LORTAB [Concomitant]
     Dosage: UNK, PRN
  4. FOLIC ACID [Concomitant]
     Dosage: UNK, QD
  5. PHENERGAN [Concomitant]
     Dosage: UNK, PRN
  6. TRAZODONE [Concomitant]
     Dosage: 100 MG, QD (QHS)

REACTIONS (6)
  - Biopsy liver [Recovered/Resolved]
  - Platelet count decreased [Recovering/Resolving]
  - Haemoglobin decreased [Recovering/Resolving]
  - Iron overload [Unknown]
  - Device related infection [Recovering/Resolving]
  - Pyrexia [Recovering/Resolving]
